FAERS Safety Report 9196349 (Version 1)
Quarter: 2013Q1

REPORT INFORMATION
  Report Type: Spontaneous
  Country: US (occurrence: None)
  Receive Date: 20120709
  Receipt Date: 20120709
  Transmission Date: 20140127
  Serious: No
  Sender: FDA-Public Use
  Company Number: 2012HGS-003514

PATIENT
  Age: 45 Year
  Sex: Female
  Weight: 83.46 kg

DRUGS (8)
  1. BENLYSTA [Suspect]
     Indication: SYSTEMIC LUPUS ERYTHEMATOSUS
     Dosage: 1 IN 14 D
     Route: 041
     Dates: start: 20120327
  2. PREDNISONE (PREDNISONE)(PREDNISONE) [Concomitant]
  3. RITALIN (METHYLPHENIDATE HYDROCHLORIDE)(METHYLPHENIDATE HYDROCHLORIDE) [Concomitant]
  4. WELLBUTRIN (BUPROPION HYDROCHLORIDE)(BUPROPION HYDROCHLORIDE) [Concomitant]
  5. CELEXA (CITALOPRAM HYDROBROMIDE)(CITALOPRAM HYDROBROMIDE) [Concomitant]
  6. ZANTAC (RANITIDINE HYDROCHLORIDE)(RANITIDINE HYDROCHLORIDE) [Concomitant]
     Dosage: 1 IN THE MORNINGS
  7. RHEUMATREX (METHOTREXATE)(METHOTREXATE) [Concomitant]
  8. OMEPRAZOLE (OMEPRAZOLE)(OMEPRAZOLE) [Concomitant]
     Dosage: IN THE EVENINGS

REACTIONS (2)
  - Pain in extremity [None]
  - Pain in extremity [None]
